FAERS Safety Report 7867319-3 (Version None)
Quarter: 2011Q4

REPORT INFORMATION
  Report Type: 
  Country: None (occurrence: None)
  Receive Date: 20111028
  Receipt Date: 20111020
  Transmission Date: 20120403
  Serious: Yes (Hospitalization)
  Sender: FDA-Public Use
  Company Number: CA-US-EMD SERONO, INC.-7091281

PATIENT
  Sex: Female

DRUGS (2)
  1. CHEMOTHERAPY [Concomitant]
  2. REBIF [Suspect]
     Indication: PRODUCT USED FOR UNKNOWN INDICATION
     Route: 058
     Dates: start: 20100719

REACTIONS (3)
  - CYSTITIS [None]
  - HYPOAESTHESIA [None]
  - HEMIPARESIS [None]
